FAERS Safety Report 7043106-3 (Version None)
Quarter: 2010Q3

REPORT INFORMATION
  Report Type: 
  Country: None (occurrence: None)
  Receive Date: 20100929
  Receipt Date: 20100607
  Transmission Date: 20110219
  Serious: No
  Sender: FDA-Public Use
  Company Number: US-WYE-H15533010

PATIENT
  Age: 25 Year
  Sex: Female
  Weight: 72.64 kg

DRUGS (10)
  1. PRISTIQ [Suspect]
     Indication: BIPOLAR DISORDER
     Dosage: 50 MG 1X PER 1 DAY, ORAL
     Route: 048
     Dates: start: 20080101
  2. PRISTIQ [Suspect]
     Indication: DEPRESSION
     Dosage: 50 MG 1X PER 1 DAY, ORAL
     Route: 048
     Dates: start: 20080101
  3. SEASONALE (0.15MG LEVONORGESTREL/0.03MG ETHINYL ESTRADIOL) [Concomitant]
  4. ABILIFY [Concomitant]
  5. KLONOPIN [Concomitant]
  6. PROTONIX [Concomitant]
  7. LEVOTHYROXINE SODIUM [Concomitant]
  8. PERCOCET [Concomitant]
  9. SKELAXIN [Concomitant]
  10. VYVANSE [Concomitant]

REACTIONS (1)
  - COELIAC DISEASE [None]
